FAERS Safety Report 9816838 (Version 1)
Quarter: 2014Q1

REPORT INFORMATION
  Report Type: Spontaneous
  Country: US (occurrence: US)
  Receive Date: 20140114
  Receipt Date: 20140114
  Transmission Date: 20141002
  Serious: Yes (Death)
  Sender: FDA-Public Use
  Company Number: US-MPIJNJ-2014MPI000121

PATIENT
  Sex: Male

DRUGS (3)
  1. VELCADE [Suspect]
     Indication: AMYLOIDOSIS
     Dosage: 1.3 MG/M2, UNK
  2. CYTOXAN [Concomitant]
  3. DEXAMETHASONE [Concomitant]

REACTIONS (2)
  - Sudden cardiac death [Fatal]
  - Off label use [Unknown]
